FAERS Safety Report 7391232-1 (Version None)
Quarter: 2011Q2

REPORT INFORMATION
  Report Type: 
  Country: None (occurrence: None)
  Receive Date: 20110404
  Receipt Date: 20100611
  Transmission Date: 20111010
  Serious: Yes (Other)
  Sender: FDA-Public Use
  Company Number: US-PFIZER INC-2010073793

PATIENT
  Sex: Female
  Weight: 68.027 kg

DRUGS (2)
  1. KLONOPIN [Concomitant]
     Dosage: 1.5 MG, UNK
  2. SERTRALINE HYDROCHLORIDE [Suspect]
     Indication: ANXIETY
     Dosage: 150 MG, 1X/DAY
     Route: 048
     Dates: start: 20090101, end: 20090101

REACTIONS (2)
  - ANXIETY [None]
  - TREMOR [None]
